FAERS Safety Report 19615252 (Version 1)
Quarter: 2021Q3

REPORT INFORMATION
  Report Type: Spontaneous
  Country: FR (occurrence: FR)
  Receive Date: 20210727
  Receipt Date: 20210727
  Transmission Date: 20211014
  Serious: Yes (Life-Threatening)
  Sender: FDA-Public Use
  Company Number: FR-ELI_LILLY_AND_COMPANY-FR202107009657

PATIENT
  Age: 13 Year
  Sex: Female
  Weight: 58 kg

DRUGS (2)
  1. OLANZAPINE. [Suspect]
     Active Substance: OLANZAPINE
     Indication: POISONING DELIBERATE
     Dosage: 6 DOSAGE FORM, UNKNOWN
     Route: 048
     Dates: start: 20210601, end: 20210601
  2. TERCIAN [CYAMEMAZINE] [Suspect]
     Active Substance: CYAMEMAZINE
     Indication: POISONING DELIBERATE
     Dosage: 11 DOSAGE FORM, UNKNOWN
     Route: 048
     Dates: start: 20210601, end: 20210601

REACTIONS (3)
  - Poisoning deliberate [Recovered/Resolved]
  - Depressed level of consciousness [Recovered/Resolved]
  - Hypotension [Recovered/Resolved]

NARRATIVE: CASE EVENT DATE: 20210601
